FAERS Safety Report 17147698 (Version 1)
Quarter: 2019Q4

REPORT INFORMATION
  Report Type: Spontaneous
  Country: DE (occurrence: DE)
  Receive Date: 20191212
  Receipt Date: 20191212
  Transmission Date: 20200122
  Serious: Yes (Death, Hospitalization)
  Sender: FDA-Public Use
  Company Number: DE-BAUSCH-BL-2019-064562

PATIENT
  Age: 57 Year
  Sex: Male

DRUGS (9)
  1. PREDNISOLONE. [Suspect]
     Active Substance: PREDNISOLONE
     Indication: PRODUCT USED FOR UNKNOWN INDICATION
     Dosage: NK MG, 2-0-0-0; FROM 1-3 DAY AFTER CHEMOTHERAPY
     Route: 065
  2. VINCRISTINE [Suspect]
     Active Substance: VINCRISTINE
     Indication: PRODUCT USED FOR UNKNOWN INDICATION
     Dosage: LAST ON 04/JAN/2018
     Route: 065
     Dates: end: 20180104
  3. RITUXIMAB. [Suspect]
     Active Substance: RITUXIMAB
     Indication: PRODUCT USED FOR UNKNOWN INDICATION
     Dosage: LAST ON 04/JAN/2018
     Route: 065
     Dates: end: 20180104
  4. DOXORUBICIN [Suspect]
     Active Substance: DOXORUBICIN
     Indication: PRODUCT USED FOR UNKNOWN INDICATION
     Dosage: LAST ON 04/JAN/2018
     Route: 065
     Dates: end: 20180104
  5. ALLOPURINOL. [Concomitant]
     Active Substance: ALLOPURINOL
     Indication: PRODUCT USED FOR UNKNOWN INDICATION
  6. UROMITEXAN [Concomitant]
     Active Substance: MESNA
     Indication: PRODUCT USED FOR UNKNOWN INDICATION
     Dosage: NK MG, THE DAY BEFORE CHEMOTHERAPY
  7. CYCLOPHOSPHAMIDE. [Suspect]
     Active Substance: CYCLOPHOSPHAMIDE
     Indication: PRODUCT USED FOR UNKNOWN INDICATION
     Dosage: LAST ON 04/JAN/2018
     Route: 065
     Dates: end: 20180104
  8. COTRIM FORTE [Concomitant]
     Active Substance: SULFAMETHOXAZOLE\TRIMETHOPRIM
     Indication: PRODUCT USED FOR UNKNOWN INDICATION
     Dosage: NK MG, MONDAY, WEDNESDAY, FRIDAY
  9. DEKRISTOL [Concomitant]
     Active Substance: CHOLECALCIFEROL
     Indication: PRODUCT USED FOR UNKNOWN INDICATION
     Dosage: NK MG

REACTIONS (3)
  - Leukopenia [Unknown]
  - General physical health deterioration [Unknown]
  - Pyrexia [Unknown]
